FAERS Safety Report 4643177-5 (Version None)
Quarter: 2005Q2

REPORT INFORMATION
  Report Type: 
  Country: None (occurrence: None)
  Receive Date: 20050422
  Receipt Date: 20050219
  Transmission Date: 20051028
  Serious: Yes (Other)
  Sender: FDA-Public Use
  Company Number: 2005033661

PATIENT
  Age: 84 Year
  Sex: Female

DRUGS (3)
  1. LIPITOR [Suspect]
     Indication: ILL-DEFINED DISORDER
  2. DONEPEZIL HCL [Suspect]
     Indication: ILL-DEFINED DISORDER
  3. ARTHROTEC [Suspect]
     Indication: ARTHRALGIA

REACTIONS (8)
  - APNOEA [None]
  - DRUG INEFFECTIVE [None]
  - DRUG PRESCRIBING ERROR [None]
  - DYSPHAGIA [None]
  - FALL [None]
  - FOREIGN BODY TRAUMA [None]
  - LOSS OF CONSCIOUSNESS [None]
  - NONSPECIFIC REACTION [None]
